FAERS Safety Report 4325736-2 (Version None)
Quarter: 2004Q1

REPORT INFORMATION
  Report Type: 
  Country: None (occurrence: None)
  Receive Date: 20040324
  Receipt Date: 20040309
  Transmission Date: 20041129
  Serious: Yes (Other)
  Sender: FDA-Public Use
  Company Number: USA040259398

PATIENT
  Age: 82 Year
  Sex: Female
  Weight: 44 kg

DRUGS (6)
  1. EVISTA [Suspect]
     Indication: OSTEOPOROSIS
     Dosage: 60 MG/1 DAY
     Dates: start: 19960101
  2. FOSAMAX [Concomitant]
  3. CALCIUM [Concomitant]
  4. TRAZADONE (TRAZODONE) [Concomitant]
  5. AMBIEN [Concomitant]
  6. DICYCLOVERINE [Concomitant]

REACTIONS (3)
  - ARTHRITIS [None]
  - CONDITION AGGRAVATED [None]
  - OSTEOPOROSIS [None]
